FAERS Safety Report 5592693-0 (Version None)
Quarter: 2007Q4

REPORT INFORMATION
  Report Type: 
  Country: None (occurrence: None)
  Receive Date: 20071218
  Receipt Date: 20061227
  Transmission Date: 20080405
  Serious: Yes (Hospitalization, Disabling, Other)
  Sender: FDA-Public Use
  Company Number: 2006109517

PATIENT
  Age: 57 Year
  Sex: Male
  Weight: 145.2 kg

DRUGS (9)
  1. BEXTRA [Suspect]
     Indication: ARTHRITIS
     Dosage: 20 MG (20 MG, 1 IN 1 D)
     Dates: start: 20030312, end: 20030412
  2. CELECOXIB [Suspect]
     Indication: PAIN
     Dosage: 200 MG (200 MG, 1 IN 1 D)
     Dates: start: 20030709
  3. VIOXX [Suspect]
     Indication: OSTEOARTHRITIS
     Dosage: 25 MG (25 MG, 1 IN 1 D)
     Dates: start: 20021018
  4. LISINOPRIL [Concomitant]
  5. ATENOLOL [Concomitant]
  6. CARDIZEM (DILTIAZEAM HYDROCHLORIDE) [Concomitant]
  7. CLONIDINE [Concomitant]
  8. ISOSORBIDE (ISOSORBIDE) [Concomitant]
  9. ACETAMINOPHEN [Concomitant]

REACTIONS (1)
  - MYOCARDIAL INFARCTION [None]
